FAERS Safety Report 16226398 (Version 2)
Quarter: 2020Q2

REPORT INFORMATION
  Report Type: Spontaneous
  Country: US (occurrence: UM)
  Receive Date: 20190423
  Receipt Date: 20200507
  Transmission Date: 20200713
  Serious: Yes (Death, Other)
  Sender: FDA-Public Use
  Company Number: US-BRISTOL-MYERS SQUIBB COMPANY-BMS-2019-038227

PATIENT
  Sex: Male
  Weight: 70.3 kg

DRUGS (1)
  1. ELIQUIS [Suspect]
     Active Substance: APIXABAN
     Indication: MYOCARDIAL INFARCTION
     Dosage: 2.5 MILLIGRAM, BID
     Route: 048
     Dates: start: 20190125, end: 20190414

REACTIONS (2)
  - Myocardial infarction [Fatal]
  - Intentional product use issue [Unknown]
